FAERS Safety Report 21660684 (Version 1)
Quarter: 2022Q4

REPORT INFORMATION
  Report Type: Report from Study
  Country: IL (occurrence: CH)
  Receive Date: 20221130
  Receipt Date: 20221130
  Transmission Date: 20230112
  Serious: Yes (Death, Life-Threatening, Other)
  Sender: FDA-Public Use
  Company Number: IL-SUN PHARMACEUTICAL INDUSTRIES LTD-2022R1-365398

PATIENT
  Age: 90 Year
  Sex: Female

DRUGS (1)
  1. ASPIRIN [Suspect]
     Active Substance: ASPIRIN
     Indication: Antiplatelet therapy
     Dosage: UNK
     Route: 065

REACTIONS (3)
  - Shock haemorrhagic [Fatal]
  - Retroperitoneal haematoma [Unknown]
  - Haemorrhage [Unknown]
